FAERS Safety Report 4716952-6 (Version None)
Quarter: 2005Q3

REPORT INFORMATION
  Report Type: 
  Country: None (occurrence: None)
  Receive Date: 20050712
  Receipt Date: 20050107
  Transmission Date: 20060218
  Serious: Yes (Hospitalization, Other)
  Sender: FDA-Public Use
  Company Number: PHEH2005US00579

PATIENT
  Sex: Female

DRUGS (4)
  1. GLEEVEC [Suspect]
     Indication: GASTROINTESTINAL STROMAL TUMOUR
     Dosage: 400 MG, QD, ORAL
     Route: 048
     Dates: start: 20040720
  2. NORVASC [Concomitant]
  3. SYNTHROID [Concomitant]
  4. PRAVACHOL [Concomitant]

REACTIONS (2)
  - HYPONATRAEMIA [None]
  - PERIORBITAL OEDEMA [None]
